FAERS Safety Report 8123532-1 (Version None)
Quarter: 2012Q1

REPORT INFORMATION
  Report Type: 
  Country: None (occurrence: None)
  Receive Date: 20120208
  Receipt Date: 20120202
  Transmission Date: 20120608
  Serious: Yes (Other)
  Sender: FDA-Public Use
  Company Number: PHEH2012US002942

PATIENT

DRUGS (2)
  1. TASIGNA [Suspect]
     Route: 048
  2. HYDROXYUREA [Suspect]

REACTIONS (1)
  - MENINGITIS [None]
